FAERS Safety Report 4324695-6 (Version None)
Quarter: 2004Q1

REPORT INFORMATION
  Report Type: 
  Country: None (occurrence: None)
  Receive Date: 20040323
  Receipt Date: 20040301
  Transmission Date: 20041129
  Serious: Yes (Life-Threatening, Hospitalization)
  Sender: FDA-Public Use
  Company Number: ITWYE356317OCT03

PATIENT
  Age: 75 Year
  Sex: Female

DRUGS (2)
  1. GEMTUZUMAB OZOGAMICIN (GENTUZUMAB OZOGAMICIN, INJECTION) [Suspect]
     Indication: ACUTE MYELOID LEUKAEMIA
     Dosage: 9 MG/M^2 1 X PER 1 DAY
     Route: 042
     Dates: start: 20020309, end: 20020309
  2. GEMTUZUMAB OZOGAMICIN (GENTUZUMAB OZOGAMICIN, INJECTION) [Suspect]
     Indication: ACUTE MYELOID LEUKAEMIA
     Dosage: 9 MG/M^2 1 X PER 1 DAY
     Route: 042
     Dates: start: 20020323, end: 20020323

REACTIONS (9)
  - CARDIAC FIBRILLATION [None]
  - HYPOTENSION [None]
  - MUCOSAL INFLAMMATION [None]
  - OEDEMA [None]
  - OLIGURIA [None]
  - PYREXIA [None]
  - SHOCK [None]
  - STREPTOCOCCAL INFECTION [None]
  - WHITE BLOOD CELL COUNT DECREASED [None]
